FAERS Safety Report 4599286-2 (Version None)
Quarter: 2005Q1

REPORT INFORMATION
  Report Type: 
  Country: None (occurrence: None)
  Receive Date: 20050302
  Receipt Date: 20050302
  Transmission Date: 20050727
  Serious: Yes (Life-Threatening, Hospitalization)
  Sender: FDA-Public Use
  Company Number: None

PATIENT
  Sex: Male
  Weight: 107 kg

DRUGS (11)
  1. IMATINIB MESYLATE 100MG CAPSULES, NOVARTIS [Suspect]
     Indication: GLIOBLASTOMA MULTIFORME
     Dosage: 400MG DAILY PO X 8 DAYS
     Route: 048
     Dates: start: 20050209, end: 20050216
  2. TEMOZOLOMIDE [Suspect]
     Indication: GLIOBLASTOMA MULTIFORME
     Dosage: 320MG DAILY PO X 5 DAYS
     Route: 048
     Dates: start: 20050212, end: 20050216
  3. DECADRON [Concomitant]
  4. TEGRETOL [Concomitant]
  5. POTASSIUM CHLORIDE [Concomitant]
  6. TYLENOL PM [Concomitant]
  7. PREVACID [Concomitant]
  8. SINGULAIR [Concomitant]
  9. ALBUTEROL [Concomitant]
  10. SEPTRA DS [Concomitant]
  11. RITALIN [Concomitant]

REACTIONS (3)
  - DISEASE PROGRESSION [None]
  - OEDEMA PERIPHERAL [None]
  - PULMONARY EMBOLISM [None]
